FAERS Safety Report 21528939 (Version 1)
Quarter: 2022Q4

REPORT INFORMATION
  Report Type: Spontaneous
  Country: KR (occurrence: KR)
  Receive Date: 20221031
  Receipt Date: 20221031
  Transmission Date: 20230112
  Serious: Yes (Other)
  Sender: FDA-Public Use
  Company Number: KR-MYLANLABS-2022M1118826

PATIENT
  Sex: Male

DRUGS (1)
  1. ZELDOX [Suspect]
     Active Substance: ZIPRASIDONE
     Indication: Psychotic disorder
     Dosage: 1 DOSAGE FORM, QD
     Route: 065
     Dates: start: 20150307, end: 20150313

REACTIONS (1)
  - Tongue paralysis [Recovering/Resolving]

NARRATIVE: CASE EVENT DATE: 20150313
